FAERS Safety Report 17818605 (Version 1)
Quarter: 2020Q2

REPORT INFORMATION
  Report Type: Spontaneous
  Country: TR (occurrence: TR)
  Receive Date: 20200522
  Receipt Date: 20200522
  Transmission Date: 20200714
  Serious: Yes (Other)
  Sender: FDA-Public Use
  Company Number: TR-ELI_LILLY_AND_COMPANY-TR202005004707

PATIENT
  Age: 23 Year
  Sex: Male

DRUGS (1)
  1. ZYPREXA [Suspect]
     Active Substance: OLANZAPINE
     Indication: OBSESSIVE THOUGHTS
     Dosage: 5 MG, DAILY
     Route: 048
     Dates: start: 202001, end: 202005

REACTIONS (4)
  - Suicide attempt [Unknown]
  - Off label use [Unknown]
  - Suicidal ideation [Unknown]
  - Amnesia [Unknown]
